FAERS Safety Report 10735808 (Version 2)
Quarter: 2015Q1

REPORT INFORMATION
  Report Type: Report from Study
  Country: US (occurrence: US)
  Receive Date: 20150126
  Receipt Date: 20150216
  Transmission Date: 20150721
  Serious: Yes (Hospitalization)
  Sender: FDA-Public Use
  Company Number: US-BIOGENIDEC-2015BI005152

PATIENT
  Age: 50 Year
  Sex: Female
  Weight: 58 kg

DRUGS (11)
  1. LITHIUM [Concomitant]
     Active Substance: LITHIUM CARBONATE
  2. CALCIUM [Concomitant]
     Active Substance: CALCIUM
  3. VITAMIN D [Concomitant]
     Active Substance: CHOLECALCIFEROL
  4. VESICARE [Concomitant]
     Active Substance: SOLIFENACIN SUCCINATE
  5. TECFIDERA [Suspect]
     Active Substance: DIMETHYL FUMARATE
     Indication: MULTIPLE SCLEROSIS
     Route: 048
     Dates: start: 20140626
  6. TIZANDINE [Concomitant]
  7. DIVALPROEX [Concomitant]
     Active Substance: DIVALPROEX SODIUM
  8. ALPRAZOLAM. [Concomitant]
     Active Substance: ALPRAZOLAM
  9. QUETIAPINE [Concomitant]
     Active Substance: QUETIAPINE
  10. LEVOTHYROXINE [Concomitant]
     Active Substance: LEVOTHYROXINE
  11. MAXI-HAIR [Concomitant]

REACTIONS (2)
  - Meniscus injury [Unknown]
  - Rosacea [Not Recovered/Not Resolved]

NARRATIVE: CASE EVENT DATE: 201412
